FAERS Safety Report 5648728-X (Version None)
Quarter: 2008Q1

REPORT INFORMATION
  Report Type: 
  Country: None (occurrence: None)
  Receive Date: 20080229
  Receipt Date: 20080213
  Transmission Date: 20080703
  Serious: Yes (Hospitalization)
  Sender: FDA-Public Use
  Company Number: S08-FRA-00697-01

PATIENT
  Age: 98 Year
  Sex: Female

DRUGS (9)
  1. CITALOPRAM HYDROBROMIDE [Suspect]
     Dosage: 20 MG QD PO
     Route: 048
     Dates: end: 20071226
  2. ZOLPIDEM TARTRATE [Suspect]
     Dosage: 10 MG QD PO
     Route: 048
     Dates: end: 20071225
  3. ZOLPIDEM TARTRATE [Suspect]
     Dosage: 5 MG QD PO
     Route: 048
     Dates: start: 20071226
  4. ATARAX [Suspect]
     Dosage: 50 MG QD PO
     Route: 048
     Dates: end: 20071226
  5. PERCIAN (CYAMEMAZINE) [Suspect]
     Dosage: 40 DROPS PO
     Route: 048
     Dates: end: 20071226
  6. TRIVASTAL (PIRIBEDIL) [Suspect]
     Dosage: 50 MG QD PO
     Route: 048
     Dates: end: 20071226
  7. TRAMADOL HCL [Suspect]
     Dosage: 100 MG QD PO
     Route: 048
     Dates: end: 20071226
  8. MOVICOL [Concomitant]
  9. PREVISCAN (FLUINDIONE) [Concomitant]

REACTIONS (8)
  - CONDITION AGGRAVATED [None]
  - CREATININE RENAL CLEARANCE DECREASED [None]
  - EXTRAPYRAMIDAL DISORDER [None]
  - FALL [None]
  - HEAD INJURY [None]
  - INTERNATIONAL NORMALISED RATIO INCREASED [None]
  - VISUAL ACUITY REDUCED [None]
  - WOUND [None]
